FAERS Safety Report 24232940 (Version 1)
Quarter: 2024Q3

REPORT INFORMATION
  Report Type: Spontaneous
  Country: US (occurrence: US)
  Receive Date: 20240821
  Receipt Date: 20240821
  Transmission Date: 20241017
  Serious: Yes (Other)
  Sender: BRISTOL MYERS SQUIBB
  Company Number: US-BRISTOL-MYERS SQUIBB COMPANY-2024-130101

PATIENT
  Age: 72 Year
  Sex: Male

DRUGS (1)
  1. THALOMID [Suspect]
     Active Substance: THALIDOMIDE
     Indication: Myeloproliferative neoplasm
     Route: 048
     Dates: start: 202407

REACTIONS (6)
  - Diplopia [Unknown]
  - Arthritis [Unknown]
  - Urinary retention [Unknown]
  - Neuropathy peripheral [Unknown]
  - Ear discomfort [Unknown]
  - Off label use [Unknown]
